FAERS Safety Report 13199935 (Version 10)
Quarter: 2017Q3

REPORT INFORMATION
  Report Type: Spontaneous
  Country: US (occurrence: US)
  Receive Date: 20170208
  Receipt Date: 20170727
  Transmission Date: 20171127
  Serious: Yes (Other)
  Sender: FDA-Public Use
  Company Number: US-ACTELION-A-NJ2017-149607

PATIENT
  Age: 65 Year
  Sex: Female
  Weight: 81.63 kg

DRUGS (4)
  1. LETAIRIS [Suspect]
     Active Substance: AMBRISENTAN
     Indication: PRODUCT USED FOR UNKNOWN INDICATION
     Dosage: 5 MG, QD
     Route: 048
     Dates: start: 20160927, end: 20170307
  2. LETAIRIS [Suspect]
     Active Substance: AMBRISENTAN
     Dosage: 10 MG, QD
     Route: 048
  3. ADCIRCA [Suspect]
     Active Substance: TADALAFIL
     Indication: PRODUCT USED FOR UNKNOWN INDICATION
     Route: 065
  4. UPTRAVI [Suspect]
     Active Substance: SELEXIPAG
     Indication: PULMONARY ARTERIAL HYPERTENSION
     Dosage: 400 MCG, BID
     Route: 048
     Dates: start: 20170120

REACTIONS (20)
  - Crohn^s disease [Not Recovered/Not Resolved]
  - Toxicity to various agents [Not Recovered/Not Resolved]
  - Middle ear effusion [Unknown]
  - Lip swelling [Not Recovered/Not Resolved]
  - Muscle spasms [Unknown]
  - Therapy non-responder [Unknown]
  - Blood pressure increased [Unknown]
  - Hepatic enzyme decreased [Not Recovered/Not Resolved]
  - Fluid retention [Unknown]
  - Peripheral swelling [Recovered/Resolved]
  - Oedema [Unknown]
  - Feeling abnormal [Unknown]
  - Condition aggravated [Recovered/Resolved]
  - Ascites [Unknown]
  - Quality of life decreased [Unknown]
  - Multiple sclerosis relapse [Not Recovered/Not Resolved]
  - Syncope [Unknown]
  - Vasodilatation [Unknown]
  - Nasal congestion [Unknown]
  - Headache [Unknown]
